FAERS Safety Report 6466235-1 (Version None)
Quarter: 2009Q4

REPORT INFORMATION
  Report Type: 
  Country: None (occurrence: None)
  Receive Date: 20091202
  Receipt Date: 20091120
  Transmission Date: 20100525
  Serious: Yes (Hospitalization)
  Sender: FDA-Public Use
  Company Number: PHHY2009FR51015

PATIENT
  Age: 58 Year
  Sex: Female

DRUGS (1)
  1. METOPIRONE [Suspect]
     Indication: CUSHING'S SYNDROME
     Dosage: 750 MG, TID
     Route: 048
     Dates: start: 20090601, end: 20090831

REACTIONS (2)
  - AGRANULOCYTOSIS [None]
  - NEUTROPENIA [None]
